FAERS Safety Report 17431874 (Version 1)
Quarter: 2020Q1

REPORT INFORMATION
  Report Type: Spontaneous
  Country: IT (occurrence: IT)
  Receive Date: 20200218
  Receipt Date: 20200218
  Transmission Date: 20200409
  Serious: Yes (Other)
  Sender: FDA-Public Use
  Company Number: IT-TAKEDA-2020TUS010402

PATIENT
  Sex: Female

DRUGS (6)
  1. BRINTELLIX [Suspect]
     Active Substance: VORTIOXETINE HYDROBROMIDE
     Indication: PRODUCT USED FOR UNKNOWN INDICATION
     Dosage: 6 GTT DROPS
     Route: 048
     Dates: start: 201901
  2. BRINTELLIX [Suspect]
     Active Substance: VORTIOXETINE HYDROBROMIDE
     Dosage: 8 GTT DROPS, QD
     Route: 048
  3. CONGESCOR [Concomitant]
     Active Substance: BISOPROLOL
     Indication: PRODUCT USED FOR UNKNOWN INDICATION
     Dosage: 45 MILLIGRAM, QD
     Route: 065
     Dates: start: 2016
  4. TIMOLOL MALEATE W/TRAVOPROST [Concomitant]
     Active Substance: TIMOLOL MALEATE\TRAVOPROST
     Indication: GLAUCOMA
     Dosage: 1 GTT DROPS, Q12H
     Route: 065
     Dates: start: 2015
  5. BRINTELLIX [Suspect]
     Active Substance: VORTIOXETINE HYDROBROMIDE
     Dosage: 12 GTT DROPS
     Route: 048
     Dates: start: 201907
  6. LAMOTRIGINE. [Concomitant]
     Active Substance: LAMOTRIGINE
     Indication: DYSTONIA
     Dosage: 125 MILLIGRAM
     Route: 065
     Dates: start: 2013

REACTIONS (2)
  - Urinary retention [Recovering/Resolving]
  - Hyperhidrosis [Recovering/Resolving]
